FAERS Safety Report 7690003-6 (Version None)
Quarter: 2011Q3

REPORT INFORMATION
  Report Type: 
  Country: None (occurrence: None)
  Receive Date: 20110818
  Receipt Date: 20090309
  Transmission Date: 20111222
  Serious: No
  Sender: FDA-Public Use
  Company Number: 2009BI007869

PATIENT
  Age: 47 Year
  Sex: Female

DRUGS (1)
  1. TYSABRI [Suspect]
     Indication: MULTIPLE SCLEROSIS
     Route: 042
     Dates: start: 20081104, end: 20090114

REACTIONS (8)
  - COGNITIVE DISORDER [None]
  - HYPERSENSITIVITY [None]
  - PRURITUS [None]
  - GAIT DISTURBANCE [None]
  - MALAISE [None]
  - FATIGUE [None]
  - BLOOD PRESSURE DECREASED [None]
  - URTICARIA [None]
